FAERS Safety Report 5177507-5 (Version None)
Quarter: 2006Q4

REPORT INFORMATION
  Report Type: 
  Country: None (occurrence: None)
  Receive Date: 20061207
  Receipt Date: 20061201
  Transmission Date: 20070319
  Serious: Yes (Other)
  Sender: FDA-Public Use
  Company Number: 06121938

PATIENT
  Age: 38 Year
  Sex: Male

DRUGS (6)
  1. FLUCONAZOLE [Suspect]
     Indication: PYREXIA
     Dosage: 400MG, QD, INTRAVENOUS
     Route: 042
  2. VANCOMYCIN [Concomitant]
  3. IMIPENEM (IMIPENEM) [Concomitant]
  4. LOPRESSOR [Concomitant]
  5. HYDROCHLOROTHIAZIDE [Concomitant]
  6. ASPIRIN [Concomitant]

REACTIONS (1)
  - ADRENAL INSUFFICIENCY [None]
